FAERS Safety Report 18186724 (Version 1)
Quarter: 2020Q3

REPORT INFORMATION
  Report Type: Spontaneous
  Country: US (occurrence: US)
  Receive Date: 20200824
  Receipt Date: 20200824
  Transmission Date: 20201103
  Serious: No
  Sender: FDA-Public Use
  Company Number: US-PFIZER INC-2020324484

PATIENT
  Age: 49 Year
  Sex: Male

DRUGS (1)
  1. IBRANCE [Suspect]
     Active Substance: PALBOCICLIB
     Indication: BREAST CANCER METASTATIC
     Dosage: 100 MG, CYCLIC (TAKE 1 CAPSULE ONCE DAILY/3WEEKS ON AND 2 WEEKS OFF )
     Route: 048
     Dates: start: 20151001

REACTIONS (4)
  - Neoplasm progression [Unknown]
  - White blood cell count decreased [Unknown]
  - Suspected COVID-19 [Unknown]
  - Blood test abnormal [Unknown]
